FAERS Safety Report 21041586 (Version 2)
Quarter: 2022Q3

REPORT INFORMATION
  Report Type: Spontaneous
  Country: US (occurrence: None)
  Receive Date: 20220705
  Receipt Date: 20220810
  Transmission Date: 20221027
  Serious: No
  Sender: FDA-Public Use
  Company Number: 2022A234424

PATIENT
  Age: 26062 Day
  Sex: Female
  Weight: 78.7 kg

DRUGS (1)
  1. IMFINZI [Suspect]
     Active Substance: DURVALUMAB
     Indication: Cholangiocarcinoma
     Dosage: ON DAY 1, THEN EVERY 21 DAYS FOR 4 CYCLES1500MG/ML
     Route: 042

REACTIONS (2)
  - Gait inability [Unknown]
  - Abdominal pain upper [Unknown]

NARRATIVE: CASE EVENT DATE: 20220617
